FAERS Safety Report 20440875 (Version 3)
Quarter: 2022Q1

REPORT INFORMATION
  Report Type: Report from Study
  Country: CA (occurrence: CA)
  Receive Date: 20220207
  Receipt Date: 20220303
  Transmission Date: 20220423
  Serious: Yes (Hospitalization, Other)
  Sender: FDA-Public Use
  Company Number: CA-ABBVIE-22K-028-4265300-00

PATIENT
  Age: 37 Year
  Sex: Female

DRUGS (1)
  1. HUMIRA [Suspect]
     Active Substance: ADALIMUMAB
     Indication: Crohn^s disease
     Route: 058
     Dates: start: 20101217, end: 20211225

REACTIONS (7)
  - Concussion [Unknown]
  - Road traffic accident [Unknown]
  - Cervical vertebral fracture [Unknown]
  - Clavicle fracture [Unknown]
  - Spinal fracture [Unknown]
  - Postoperative wound infection [Unknown]
  - Ulcer [Not Recovered/Not Resolved]

NARRATIVE: CASE EVENT DATE: 20211225
